FAERS Safety Report 4778589-2 (Version None)
Quarter: 2005Q3

REPORT INFORMATION
  Report Type: 
  Country: None (occurrence: None)
  Receive Date: 20050926
  Receipt Date: 20050718
  Transmission Date: 20060218
  Serious: Yes (Hospitalization, Disabling)
  Sender: FDA-Public Use
  Company Number: US-MERCK-0507USA03053

PATIENT
  Age: 58 Year
  Sex: Female
  Weight: 106 kg

DRUGS (7)
  1. VIOXX [Suspect]
     Indication: ARTHRITIS
     Route: 048
  2. INSULIN [Concomitant]
     Route: 051
  3. INSULIN [Concomitant]
     Route: 051
  4. LASIX [Concomitant]
     Route: 048
  5. LASIX [Concomitant]
     Route: 048
  6. COZAAR [Concomitant]
     Route: 048
  7. COZAAR [Concomitant]
     Route: 048

REACTIONS (7)
  - CARPAL TUNNEL SYNDROME [None]
  - CEREBROVASCULAR ACCIDENT [None]
  - DEAFNESS [None]
  - DIZZINESS [None]
  - FALL [None]
  - LIMB INJURY [None]
  - STRESS [None]
